FAERS Safety Report 5273879-1 (Version None)
Quarter: 2007Q1

REPORT INFORMATION
  Report Type: 
  Country: None (occurrence: None)
  Receive Date: 20070323
  Receipt Date: 20070313
  Transmission Date: 20070707
  Serious: Yes (Hospitalization, Other)
  Sender: FDA-Public Use
  Company Number: IT-ABBOTT-07P-083-0361902-00

PATIENT
  Age: 56 Year
  Sex: Male

DRUGS (29)
  1. CYCLOSPORINE [Suspect]
     Indication: IMMUNOSUPPRESSION
     Route: 065
  2. CYCLOSPORINE [Suspect]
     Route: 065
  3. CYCLOSPORINE [Suspect]
     Route: 065
  4. CYCLOSPORINE [Suspect]
     Route: 065
  5. CYCLOSPORINE [Suspect]
     Route: 065
  6. CYCLOSPORINE [Suspect]
     Route: 065
  7. CYCLOSPORINE [Suspect]
     Route: 065
  8. CYCLOSPORINE [Suspect]
     Route: 065
  9. EVEROLIMUS [Interacting]
     Indication: IMMUNOSUPPRESSION
     Route: 065
  10. EVEROLIMUS [Interacting]
     Route: 065
  11. EVEROLIMUS [Interacting]
     Route: 065
  12. FLUCONAZOLE [Interacting]
     Indication: PNEUMONIA BACTERIAL
     Route: 065
  13. FLUCONAZOLE [Interacting]
     Indication: CANDIDA PNEUMONIA
  14. CIPROXACINE [Interacting]
     Indication: PNEUMONIA BACTERIAL
     Route: 065
  15. CIPROXACINE [Interacting]
     Indication: CANDIDA PNEUMONIA
  16. AZATHIOPRINE [Concomitant]
     Indication: IMMUNOSUPPRESSION
  17. PREDNISONE [Concomitant]
     Indication: IMMUNOSUPPRESSION
  18. CAPTOPRIL [Concomitant]
     Indication: HYPERTENSION
  19. FUROSEMIDE [Concomitant]
     Indication: HYPERTENSION
  20. PRAVASTATIN [Concomitant]
     Indication: HYPERCHOLESTEROLAEMIA
  21. ASPIRIN [Concomitant]
     Indication: DRUG USE FOR UNKNOWN INDICATION
  22. RAMIPRIL [Concomitant]
     Indication: DRUG USE FOR UNKNOWN INDICATION
  23. ATENOLOL [Concomitant]
     Indication: DRUG USE FOR UNKNOWN INDICATION
  24. TICLOPIDINE [Concomitant]
     Indication: DRUG USE FOR UNKNOWN INDICATION
  25. ATORVASTATIN CALCIUM [Concomitant]
     Indication: DRUG USE FOR UNKNOWN INDICATION
  26. ATORVASTATIN CALCIUM [Concomitant]
  27. ATORVASTATIN CALCIUM [Concomitant]
  28. ANTILYMPHOCYTE IMMUNOGLOBULIN (RABBIT) [Concomitant]
     Indication: IMMUNOSUPPRESSION
  29. NIMESULIDE [Concomitant]
     Indication: BACK PAIN
     Route: 065

REACTIONS (5)
  - CARDIOVASCULAR DISORDER [None]
  - DRUG INTERACTION [None]
  - MYOCARDIAL INFARCTION [None]
  - PNEUMONIA [None]
  - RENAL FAILURE ACUTE [None]
